FAERS Safety Report 13026627 (Version 2)
Quarter: 2016Q4

REPORT INFORMATION
  Report Type: Spontaneous
  Country: JP (occurrence: JP)
  Receive Date: 20161214
  Receipt Date: 20161221
  Transmission Date: 20170207
  Serious: Yes (Other)
  Sender: FDA-Public Use
  Company Number: JP-JNJFOC-20161209329

PATIENT
  Age: 89 Year
  Sex: Male

DRUGS (4)
  1. MAGMITT [Concomitant]
     Active Substance: MAGNESIUM OXIDE
     Route: 048
  2. ZYTIGA [Suspect]
     Active Substance: ABIRATERONE ACETATE
     Indication: PRODUCT USED FOR UNKNOWN INDICATION
     Route: 048
  3. MEMARY [Concomitant]
     Active Substance: MEMANTINE HYDROCHLORIDE
     Route: 048
  4. PREDONINE [Concomitant]
     Active Substance: PREDNISOLONE\PREDNISOLONE ACETATE\PREDNISOLONE SODIUM SUCCINATE
     Route: 065

REACTIONS (4)
  - Wrong technique in product usage process [Unknown]
  - Labile blood pressure [Unknown]
  - Product size issue [Unknown]
  - Off label use [Unknown]
